FAERS Safety Report 7386113-3 (Version None)
Quarter: 2011Q1

REPORT INFORMATION
  Report Type: 
  Country: None (occurrence: None)
  Receive Date: 20110314
  Receipt Date: 20110302
  Transmission Date: 20110831
  Serious: Yes (Hospitalization, Other)
  Sender: FDA-Public Use
  Company Number: 2011PROUSA00158

PATIENT
  Age: 73 Year
  Sex: Male
  Weight: 87 kg

DRUGS (9)
  1. PEPCID [Concomitant]
  2. CALCIUM [Concomitant]
  3. DOXAZOSIN [Concomitant]
  4. COLACE (DOCUSATE SODIUM) [Concomitant]
  5. PROVENGE [Suspect]
     Indication: PROSTATE CANCER METASTATIC
     Dosage: 250 ML, SINGLE, INTRAVENOUS
     Route: 042
     Dates: start: 20101217, end: 20101217
  6. MAGNESIUM [Concomitant]
  7. COUMADIN [Concomitant]
  8. ZINC [Concomitant]
  9. ASCORBIC ACID [Concomitant]

REACTIONS (12)
  - ASTHENIA [None]
  - HAEMATOCRIT DECREASED [None]
  - MUSCULAR WEAKNESS [None]
  - SOFT TISSUE NEOPLASM [None]
  - HAEMOGLOBIN DECREASED [None]
  - INCISION SITE PAIN [None]
  - MALAISE [None]
  - CONSTIPATION [None]
  - HYPOAESTHESIA [None]
  - NEOPLASM MALIGNANT [None]
  - PROSTATE CANCER METASTATIC [None]
  - MASS [None]
